FAERS Safety Report 9667439 (Version 4)
Quarter: 2013Q4

REPORT INFORMATION
  Report Type: Spontaneous
  Country: IT (occurrence: None)
  Receive Date: 20131031
  Receipt Date: 20131227
  Transmission Date: 20140711
  Serious: Yes (Hospitalization)
  Sender: FDA-Public Use
  Company Number: AUR-APL-2013-09071

PATIENT
  Age: 83 Year
  Sex: Female

DRUGS (11)
  1. LEVOFLOXACIN [Suspect]
     Indication: PNEUMONIA
     Dosage: 500MG (500 MG, 1 IN 1D) ORAL
     Route: 048
     Dates: start: 20130914, end: 20130924
  2. MICARDIS (TELMISARTAN) [Concomitant]
  3. KEPPRA (LEVETIRACETAM) [Concomitant]
  4. CATAPRESAN TTS (CLONIDINE) [Concomitant]
  5. TIKLID (TICLOPIDINE HYDROCHLORIDE) [Concomitant]
  6. FOSTER (PIROXICAM) [Concomitant]
  7. ZANEDIP (LERCANIDIPINE HYDROCHLORIDE) [Concomitant]
  8. LEXOTAN (BROMAZEPAM) [Concomitant]
  9. ENALAPRIL MALEATE (ENALAPRIL MALEATE) [Concomitant]
  10. OMEPRAZOLE (OMEPRAZOLE) [Concomitant]
  11. ALLOPURINOL (ALLOPURINOL) [Concomitant]

REACTIONS (1)
  - Acute generalised exanthematous pustulosis [None]
